FAERS Safety Report 23925327 (Version 3)
Quarter: 2024Q2

REPORT INFORMATION
  Report Type: Spontaneous
  Country: US (occurrence: US)
  Receive Date: 20240531
  Receipt Date: 20240618
  Transmission Date: 20240715
  Serious: No
  Sender: FDA-Public Use
  Company Number: US-SA-SAC20240524001182

PATIENT
  Age: 48 Year
  Sex: Male

DRUGS (1)
  1. DUPIXENT [Suspect]
     Active Substance: DUPILUMAB
     Indication: Nasal polyps
     Dosage: 300 MG, QOW
     Route: 058
     Dates: start: 202403

REACTIONS (5)
  - Poor quality sleep [Not Recovered/Not Resolved]
  - Abnormal dreams [Unknown]
  - Insomnia [Unknown]
  - Arthralgia [Unknown]
  - Restlessness [Unknown]

NARRATIVE: CASE EVENT DATE: 20240101
